FAERS Safety Report 11539253 (Version 1)
Quarter: 2015Q3

REPORT INFORMATION
  Report Type: Spontaneous
  Country: US (occurrence: US)
  Receive Date: 20150923
  Receipt Date: 20150923
  Transmission Date: 20151125
  Serious: No
  Sender: FDA-Public Use
  Company Number: US-PFIZER INC-2015104888

PATIENT
  Age: 77 Year
  Sex: Female
  Weight: 76 kg

DRUGS (3)
  1. SYNTHROID [Concomitant]
     Active Substance: LEVOTHYROXINE SODIUM
     Indication: HYPOTHYROIDISM
     Dosage: 88 ?G, 1X/DAY (ONE TABLET BY MOUTH IN THE MORNING ONE HOUR BEFORE SHE EATS)
     Route: 048
     Dates: start: 20130607
  2. XALKORI [Suspect]
     Active Substance: CRIZOTINIB
     Indication: NON-SMALL CELL LUNG CANCER STAGE I
     Dosage: 250 MG, 2X/DAY (250MG BID/Q 28D X12 NCCN)
     Route: 048
     Dates: start: 2015
  3. PERCOCET [Concomitant]
     Active Substance: ACETAMINOPHEN\OXYCODONE HYDROCHLORIDE
     Indication: PAIN
     Dosage: 1 DF, AS NEEDED (OXYCODONE HYDROCHLORIDE, OXYCODONE TEREPHTHALATE- 5 MG, PARACETAMOL 325MG)
     Route: 048
     Dates: start: 20150305

REACTIONS (3)
  - Abdominal discomfort [Unknown]
  - Diarrhoea [Unknown]
  - Musculoskeletal pain [Unknown]

NARRATIVE: CASE EVENT DATE: 2015
